APPROVED DRUG PRODUCT: POTASSIUM AMINOSALICYLATE
Active Ingredient: POTASSIUM AMINOSALICYLATE
Strength: 100%
Dosage Form/Route: POWDER;ORAL
Application: A080098 | Product #001
Applicant: HEXCEL CHEMICAL PRODUCTS
Approved: Approved Prior to Jan 1, 1982 | RLD: No | RS: No | Type: DISCN